FAERS Safety Report 10162357 (Version 5)
Quarter: 2020Q3

REPORT INFORMATION
  Report Type: Spontaneous
  Country: US (occurrence: US)
  Receive Date: 20140509
  Receipt Date: 20200710
  Transmission Date: 20201102
  Serious: Yes (Hospitalization, Other)
  Sender: FDA-Public Use
  Company Number: US-SA-2014SA057163

PATIENT

DRUGS (3)
  1. ZANTAC [Concomitant]
     Active Substance: RANITIDINE HYDROCHLORIDE
     Dosage: UNK
  2. MULTAQ [Suspect]
     Active Substance: DRONEDARONE
     Indication: ATRIAL FIBRILLATION
     Dosage: 400 MG,BID
     Route: 048
     Dates: start: 201111
  3. ALLEGRA [Concomitant]
     Active Substance: FEXOFENADINE HYDROCHLORIDE
     Indication: HYPERSENSITIVITY
     Dosage: UNK

REACTIONS (9)
  - Chills [Unknown]
  - Malaise [Unknown]
  - Inappropriate schedule of product administration [Unknown]
  - Pyrexia [Unknown]
  - Bacterial test [Unknown]
  - Atrial fibrillation [Recovering/Resolving]
  - Abdominal discomfort [Not Recovered/Not Resolved]
  - Weight increased [Unknown]
  - Bladder cancer [Recovering/Resolving]

NARRATIVE: CASE EVENT DATE: 2014
